FAERS Safety Report 9178822 (Version 1)
Quarter: 2012Q4

REPORT INFORMATION
  Report Type: 
  Country: US (occurrence: US)
  Receive Date: 20121029
  Receipt Date: 20121029
  Transmission Date: 20130627
  Serious: No
  Sender: FDA-Public Use
  Company Number: US-AMGEN-USASP2012052490

PATIENT
  Age: 51 Year
  Sex: Female
  Weight: 102.4 kg

DRUGS (11)
  1. ENBREL [Suspect]
     Indication: PRODUCT USED FOR UNKNOWN INDICATION
     Dosage: 50 mg, qwk
     Route: 058
  2. PREMARIN [Concomitant]
     Dosage: 0.625 mg, UNK
     Route: 048
  3. METHOTREXATE [Concomitant]
     Dosage: 2.5 mg, UNK
     Route: 048
  4. SYNTHYROID [Concomitant]
     Dosage: 88 mcg unk
     Route: 048
  5. PREVACID FDT [Concomitant]
     Dosage: 30 mg, UNK
     Route: 048
  6. LEXAPRO [Concomitant]
     Dosage: 5 mg, UNK
     Route: 048
  7. MULTIVITAMIN                       /00097801/ [Concomitant]
     Route: 048
  8. GRAPE SEED EXTRACT [Concomitant]
     Route: 048
  9. VITAMIN D /00107901/ [Concomitant]
     Dosage: 1000 UNK, UNK
     Route: 048
  10. CALCIUM [Concomitant]
     Dosage: 500 UNK, UNK
  11. FOLIC ACID [Concomitant]
     Route: 048

REACTIONS (2)
  - Injection site swelling [Unknown]
  - Injection site erythema [Unknown]
